FAERS Safety Report 20583898 (Version 1)
Quarter: 2022Q1

REPORT INFORMATION
  Report Type: Spontaneous
  Country: US (occurrence: None)
  Receive Date: 20220311
  Receipt Date: 20220311
  Transmission Date: 20220424
  Serious: Yes (Life-Threatening, Other)
  Sender: FDA-Public Use
  Company Number: None

PATIENT
  Age: 67 Year
  Sex: Male
  Weight: 70.31 kg

DRUGS (4)
  1. XELODA [Suspect]
     Active Substance: CAPECITABINE
     Indication: Rectosigmoid cancer
     Dosage: 1500MG BID ORAL
     Route: 048
     Dates: start: 20211110, end: 20220302
  2. ALOXI [Concomitant]
  3. DECADRON [Concomitant]
     Active Substance: DEXAMETHASONE
  4. ELOXATIN [Concomitant]
     Active Substance: OXALIPLATIN

REACTIONS (2)
  - Rectal haemorrhage [None]
  - Intestinal mass [None]

NARRATIVE: CASE EVENT DATE: 20211115
